FAERS Safety Report 21865977 (Version 1)
Quarter: 2023Q1

REPORT INFORMATION
  Report Type: Report from Study
  Country: US (occurrence: US)
  Receive Date: 20230116
  Receipt Date: 20230116
  Transmission Date: 20230417
  Serious: No
  Sender: FDA-Public Use
  Company Number: US-ABBVIE-4236680

PATIENT
  Age: 23 Year
  Sex: Female

DRUGS (1)
  1. RINVOQ [Suspect]
     Active Substance: UPADACITINIB
     Indication: Rheumatoid arthritis
     Dosage: DRUG START DATE 10 DEC 2022
     Route: 048

REACTIONS (7)
  - Mobility decreased [Unknown]
  - Musculoskeletal stiffness [Recovered/Resolved]
  - Pain [Unknown]
  - Impaired work ability [Unknown]
  - Loss of personal independence in daily activities [Unknown]
  - Therapeutic product effect incomplete [Unknown]
  - General physical condition abnormal [Unknown]

NARRATIVE: CASE EVENT DATE: 20221201
